FAERS Safety Report 21251897 (Version 1)
Quarter: 2022Q3

REPORT INFORMATION
  Report Type: Spontaneous
  Country: US (occurrence: None)
  Receive Date: 20220825
  Receipt Date: 20220825
  Transmission Date: 20221027
  Serious: Yes (Other)
  Sender: FDA-Public Use
  Company Number: US-Hikma Pharmaceuticals USA Inc.-US-H14001-22-02142

PATIENT
  Age: 69 Year
  Sex: Male

DRUGS (2)
  1. PREDNISONE [Suspect]
     Active Substance: PREDNISONE
     Indication: Dyspnoea
     Route: 048
     Dates: start: 20220705
  2. PREDNISONE [Suspect]
     Active Substance: PREDNISONE
     Indication: Lung disorder

REACTIONS (4)
  - Burning sensation [Not Recovered/Not Resolved]
  - Self-injurious ideation [Unknown]
  - Pain [Unknown]
  - Feeling abnormal [Unknown]

NARRATIVE: CASE EVENT DATE: 20220705
